FAERS Safety Report 12299346 (Version 1)
Quarter: 2016Q2

REPORT INFORMATION
  Report Type: Report from Study
  Country: US (occurrence: US)
  Receive Date: 20160425
  Receipt Date: 20160425
  Transmission Date: 20160815
  Serious: Yes (Hospitalization, Other)
  Sender: FDA-Public Use
  Company Number: US-AMGEN-USASL2016050230

PATIENT
  Age: 58 Year
  Sex: Female

DRUGS (2)
  1. NPLATE [Suspect]
     Active Substance: ROMIPLOSTIM
     Indication: PRODUCT USED FOR UNKNOWN INDICATION
     Dosage: UNK, QWK
     Route: 065
     Dates: start: 2015
  2. NPLATE [Suspect]
     Active Substance: ROMIPLOSTIM
     Dosage: UNK, Q2WK
     Route: 065

REACTIONS (3)
  - Injection site pain [Unknown]
  - Platelet count decreased [Unknown]
  - Hospitalisation [Unknown]
